FAERS Safety Report 7244165-5 (Version None)
Quarter: 2011Q1

REPORT INFORMATION
  Report Type: 
  Country: None (occurrence: None)
  Receive Date: 20110125
  Receipt Date: 20110112
  Transmission Date: 20110831
  Serious: Yes (Disabling, Other)
  Sender: FDA-Public Use
  Company Number: IN-MYLANLABS-2011S1000871

PATIENT
  Age: 51 Year
  Sex: Female

DRUGS (4)
  1. FLUOROURACIL [Concomitant]
     Indication: BREAST CANCER
     Dosage: SIX CYCLES.
     Route: 065
  2. CYCLOPHOSPHAMIDE [Concomitant]
     Indication: BREAST CANCER
     Dosage: SIX CYCLES.
     Route: 065
  3. DOXORUBICIN [Concomitant]
     Indication: BREAST CANCER
     Dosage: SIX CYCLES.
     Route: 065
  4. TAMOXIFEN [Suspect]
     Indication: BREAST CANCER
     Route: 065

REACTIONS (1)
  - MACULOPATHY [None]
